FAERS Safety Report 5171106-7 (Version None)
Quarter: 2006Q4

REPORT INFORMATION
  Report Type: 
  Country: None (occurrence: None)
  Receive Date: 20061213
  Receipt Date: 20061208
  Transmission Date: 20070319
  Serious: Yes (Other)
  Sender: FDA-Public Use
  Company Number: 472848

PATIENT
  Age: 52 Year
  Sex: Male

DRUGS (6)
  1. CARVEDILOL [Suspect]
     Indication: DRUG USE FOR UNKNOWN INDICATION
     Dosage: 6.25MG PER DAY
     Route: 065
     Dates: start: 20061124, end: 20061128
  2. LIPITOR [Concomitant]
     Route: 065
  3. CARTIA XT [Concomitant]
     Route: 065
  4. SPIRONOLACTONE [Concomitant]
     Route: 065
  5. CLOPIDOGREL [Concomitant]
     Route: 065
  6. INHIBACE [Concomitant]
     Route: 065

REACTIONS (8)
  - DIZZINESS [None]
  - DRY EYE [None]
  - HYPOAESTHESIA [None]
  - IRRITABILITY [None]
  - PALLOR [None]
  - TENSION [None]
  - TENSION HEADACHE [None]
  - THROAT TIGHTNESS [None]
